FAERS Safety Report 9935134 (Version 2)
Quarter: 2014Q1

REPORT INFORMATION
  Report Type: Spontaneous
  Country: DE (occurrence: DE)
  Receive Date: 20140228
  Receipt Date: 20140327
  Transmission Date: 20141002
  Serious: Yes (Hospitalization)
  Sender: FDA-Public Use
  Company Number: DE-PFIZER INC-2014053401

PATIENT
  Age: 29 Year
  Sex: Male
  Weight: 70 kg

DRUGS (3)
  1. LYRICA [Suspect]
     Indication: SUBSTANCE ABUSE
     Dosage: DOSAGE UNKNOWN
     Route: 048
  2. LYRICA [Suspect]
     Indication: ARTHRALGIA
  3. LYRICA [Suspect]
     Indication: PAIN IN EXTREMITY

REACTIONS (4)
  - Off label use [Unknown]
  - Accidental overdose [Recovered/Resolved]
  - Drug abuse [Unknown]
  - Poisoning [Recovered/Resolved]
